FAERS Safety Report 20855500 (Version 1)
Quarter: 2022Q2

REPORT INFORMATION
  Report Type: Spontaneous
  Country: US (occurrence: None)
  Receive Date: 20220519
  Receipt Date: 20220519
  Transmission Date: 20220721
  Serious: Yes (Life-Threatening, Hospitalization, Disabling)
  Sender: FDA-Public Use
  Company Number: None

PATIENT
  Age: 58 Year
  Sex: Male
  Weight: 94.8 kg

DRUGS (2)
  1. WARFARIN [Suspect]
     Active Substance: WARFARIN
  2. WARFARIN [Suspect]
     Active Substance: WARFARIN

REACTIONS (4)
  - Cerebrovascular accident [None]
  - Anticoagulation drug level below therapeutic [None]
  - Muscular weakness [None]
  - Medical device monitoring error [None]

NARRATIVE: CASE EVENT DATE: 20220510
